FAERS Safety Report 6402716-4 (Version None)
Quarter: 2009Q4

REPORT INFORMATION
  Report Type: 
  Country: None (occurrence: None)
  Receive Date: 20091013
  Receipt Date: 20090921
  Transmission Date: 20100525
  Serious: No
  Sender: FDA-Public Use
  Company Number: C09-105

PATIENT
  Age: 32 Year
  Sex: Female
  Weight: 69.8539 kg

DRUGS (2)
  1. PRENAPLUS TABLETS; PRENATAL MULTIVITAMIN/MINERAL TAB [Suspect]
     Indication: MEDICAL DIET
     Dosage: SOLID TABLET, ORAL
     Route: 048
     Dates: start: 20090602, end: 20090912
  2. PRENAPLUS TABLETS; PRENATAL MULTIVITAMIN/MINERAL TAB [Suspect]
     Indication: PREGNANCY
     Dosage: SOLID TABLET, ORAL
     Route: 048
     Dates: start: 20090602, end: 20090912

REACTIONS (3)
  - DIARRHOEA [None]
  - DRUG EXPOSURE DURING PREGNANCY [None]
  - RECTAL HAEMORRHAGE [None]
